FAERS Safety Report 9319326 (Version 1)
Quarter: 2013Q2

REPORT INFORMATION
  Report Type: Spontaneous
  Country: US (occurrence: None)
  Receive Date: 20130520
  Receipt Date: 20130520
  Transmission Date: 20140414
  Serious: Yes (Other)
  Sender: FDA-Public Use
  Company Number: 2013035522

PATIENT
  Sex: Male
  Weight: 93.9 kg

DRUGS (17)
  1. HIZENTRA (IMMUNOGLOBULIN HUMAN NORMAL) [Suspect]
     Indication: POLYARTHRITIS
     Dosage: 5 G 2X/WEEK, 1-2 SITES OVER 35 MIN - 3 HOURS SUBCUTANEOUS
     Dates: start: 20130412, end: 20130412
  2. DIPHENHYDRAMINE (DIPHENHYDRAMINE) [Concomitant]
  3. LIDOCAINE (LIDOCAINE) [Concomitant]
  4. LIDOCAINE/PRILOCAINE (EMLA /00675501/) [Concomitant]
  5. EPI-PEN (EPINEPHRINE) [Concomitant]
  6. TAMSULOSIN (TAMSULOSIN) [Concomitant]
  7. FINASTERIDE (FINASTERIDE) [Concomitant]
  8. LEVITRA (VARDENAFIL HYDROCHLORIDE) [Concomitant]
  9. VITAMIN B-12 (VITAMIN B12 NOS) [Concomitant]
  10. LEVOTHYROXINE (LEVOTHYROXINE [Concomitant]
  11. VITAMIN C [Concomitant]
  12. VITAMIN D (ERGOCALCIFEROL) [Concomitant]
  13. VITAMIN B COMPLEX (CYANOCOBALAMIN) [Concomitant]
  14. PROSTATE (PROSTATE GLAND EXTRACT) [Concomitant]
  15. POTASSIUM (POTASSIUM) [Concomitant]
  16. CALCIUM MAGNESIUM + D (CALMAG D) [Concomitant]
  17. COMPLETE MULTIVITAMIN (DAILY MULTIVITAMIN) [Concomitant]

REACTIONS (4)
  - Hypersensitivity [None]
  - Rash [None]
  - Respiratory tract oedema [None]
  - Dyspnoea [None]
